FAERS Safety Report 12647150 (Version 1)
Quarter: 2016Q3

REPORT INFORMATION
  Report Type: Spontaneous
  Country: US (occurrence: None)
  Receive Date: 20160811
  Receipt Date: 20160811
  Transmission Date: 20161109
  Serious: Yes (Hospitalization, Other)
  Sender: FDA-Public Use
  Company Number: None

PATIENT
  Age: 57 Year
  Sex: Male

DRUGS (1)
  1. TRESIBA [Suspect]
     Active Substance: INSULIN DEGLUDEC
     Indication: BLOOD GLUCOSE INCREASED
     Dosage: 200 UN/ ML STARTED @ 10 UNITS, INCREASED BY 2 UNITS UNTIL BL SUGAR 200 OR LESS ONCE/DAY 14 UNITS SUB
     Route: 058

REACTIONS (9)
  - Balance disorder [None]
  - Antipsychotic drug level increased [None]
  - Abasia [None]
  - Confusional state [None]
  - Acute kidney injury [None]
  - Urinary retention [None]
  - Blood potassium increased [None]
  - Activities of daily living impaired [None]
  - Feeling abnormal [None]

NARRATIVE: CASE EVENT DATE: 201608
